FAERS Safety Report 14773372 (Version 1)
Quarter: 2018Q2

REPORT INFORMATION
  Report Type: Spontaneous
  Country: SK (occurrence: SK)
  Receive Date: 20180418
  Receipt Date: 20180418
  Transmission Date: 20180711
  Serious: Yes (Death, Hospitalization)
  Sender: FDA-Public Use
  Company Number: SK-ACCORD-065704

PATIENT
  Age: 62 Year
  Sex: Male

DRUGS (3)
  1. NAB-PACLITAXEL [Suspect]
     Active Substance: PACLITAXEL
     Indication: PANCREATIC CARCINOMA
     Dosage: 125 MILLIGRAM/SQ. METER
     Dates: start: 20160818
  2. GEMCITABINE/GEMCITABINE HYDROCHLORIDE [Suspect]
     Active Substance: GEMCITABINE\GEMCITABINE HYDROCHLORIDE
     Indication: PANCREATIC CARCINOMA
     Dosage: 1000 MG/SQ. METER
     Route: 041
     Dates: start: 20160818
  3. ABRAXANE [Suspect]
     Active Substance: PACLITAXEL
     Indication: PRODUCT USED FOR UNKNOWN INDICATION
     Dosage: 100 MG/SQ. METER?ALSO RECEIVED AT DOSE OF 375 MG/M2 ON 18-AUG-2017, 125 MG/SQ. METER
     Route: 041
     Dates: start: 201703

REACTIONS (7)
  - Oral herpes [Unknown]
  - Death [Fatal]
  - Haematemesis [Unknown]
  - Pancreatic carcinoma [Unknown]
  - Anaemia [Unknown]
  - Melaena [Unknown]
  - Fatigue [Unknown]

NARRATIVE: CASE EVENT DATE: 201706
